FAERS Safety Report 8716833 (Version 2)
Quarter: 2012Q4

REPORT INFORMATION
  Report Type: Report from Study
  Country: IT (occurrence: IT)
  Receive Date: 20120810
  Receipt Date: 20120911
  Transmission Date: 20130627
  Serious: Yes (Death)
  Sender: FDA-Public Use
  Company Number: IT-BAYER-2012-076977

PATIENT
  Age: 64 Year
  Sex: Male
  Weight: 90 kg

DRUGS (1)
  1. SORAFENIB [Suspect]
     Indication: HEPATIC NEOPLASM MALIGNANT
     Dosage: 400 mg, BID
     Dates: start: 20101109, end: 20101125

REACTIONS (8)
  - Hepatic failure [Fatal]
  - Hepatic cancer [None]
  - Hepatocellular carcinoma [None]
  - Malignant neoplasm progression [None]
  - Oliguria [None]
  - Hypotension [None]
  - Portal vein thrombosis [None]
  - Portal hypertension [None]
